FAERS Safety Report 25453901 (Version 2)
Quarter: 2025Q3

REPORT INFORMATION
  Report Type: Spontaneous
  Country: EU (occurrence: EU)
  Receive Date: 20250619
  Receipt Date: 20250806
  Transmission Date: 20251020
  Serious: Yes (Hospitalization)
  Sender: AUROBINDO
  Company Number: EU-KENVUE-20250201766

PATIENT
  Age: 58 Year
  Sex: Female
  Weight: 79 kg

DRUGS (18)
  1. LOPERAMIDE [Suspect]
     Active Substance: LOPERAMIDE
     Indication: Product used for unknown indication
     Route: 065
  2. METFORMIN [Suspect]
     Active Substance: METFORMIN HYDROCHLORIDE
     Indication: Diabetes mellitus
     Route: 065
  3. UPTRAVI [Suspect]
     Active Substance: SELEXIPAG
     Indication: Pulmonary arterial hypertension
     Route: 048
  4. UPTRAVI [Suspect]
     Active Substance: SELEXIPAG
     Route: 048
  5. UPTRAVI [Suspect]
     Active Substance: SELEXIPAG
     Route: 048
  6. UPTRAVI [Suspect]
     Active Substance: SELEXIPAG
     Dosage: 400 MICROGRAM, ONCE A DAY (THERAPY START DATE :13-DEC-2024)
     Route: 048
     Dates: start: 20241114
  7. UPTRAVI [Suspect]
     Active Substance: SELEXIPAG
     Dosage: 800 MICROGRAM, ONCE A DAY (THERAPY START DATE:29-DEC-2024)
     Route: 048
     Dates: start: 20241130
  8. UPTRAVI [Suspect]
     Active Substance: SELEXIPAG
     Route: 048
  9. UPTRAVI [Suspect]
     Active Substance: SELEXIPAG
     Dosage: 1200 MICROGRAM, ONCE A DAY
     Route: 048
     Dates: start: 20241213
  10. UPTRAVI [Suspect]
     Active Substance: SELEXIPAG
     Dosage: 1600 MICROGRAM, ONCE A DAY
     Route: 048
     Dates: start: 20241229
  11. UPTRAVI [Suspect]
     Active Substance: SELEXIPAG
     Dosage: 2000 MICROGRAM, ONCE A DAY
     Route: 048
     Dates: start: 20250123
  12. UPTRAVI [Suspect]
     Active Substance: SELEXIPAG
     Dosage: 2400 MICROGRAM, ONCE A DAY
     Route: 048
     Dates: start: 20250206
  13. UPTRAVI [Suspect]
     Active Substance: SELEXIPAG
     Dosage: 2800 MICROGRAM, ONCE A DAY
     Route: 048
     Dates: start: 20250220
  14. UPTRAVI [Suspect]
     Active Substance: SELEXIPAG
     Dosage: 3200 MICROGRAM, ONCE A DAY
     Route: 048
     Dates: start: 20250306
  15. METFORMIN PAMOATE [Suspect]
     Active Substance: METFORMIN PAMOATE
     Indication: Product used for unknown indication
     Route: 065
  16. BOSENTAN [Concomitant]
     Active Substance: BOSENTAN
     Indication: Heritable pulmonary arterial hypertension
     Route: 065
  17. SILDENAFIL [Concomitant]
     Active Substance: SILDENAFIL
     Indication: Heritable pulmonary arterial hypertension
     Route: 065
  18. SMECTA [Concomitant]
     Active Substance: MONTMORILLONITE
     Indication: Product used for unknown indication
     Route: 065

REACTIONS (14)
  - Catheterisation cardiac [Unknown]
  - Headache [Not Recovered/Not Resolved]
  - Decreased appetite [Not Recovered/Not Resolved]
  - Nausea [Recovering/Resolving]
  - Nasopharyngitis [Not Recovered/Not Resolved]
  - Cough [Not Recovered/Not Resolved]
  - Hot flush [Not Recovered/Not Resolved]
  - Insomnia [Not Recovered/Not Resolved]
  - Pain in jaw [Not Recovered/Not Resolved]
  - Dyspnoea [Recovering/Resolving]
  - Parosmia [Recovering/Resolving]
  - Diarrhoea [Recovered/Resolved]
  - Fatigue [Recovered/Resolved]
  - Myalgia [Recovered/Resolved]

NARRATIVE: CASE EVENT DATE: 20240101
